FAERS Safety Report 8521969-X (Version None)
Quarter: 2012Q3

REPORT INFORMATION
  Report Type: 
  Country: None (occurrence: None)
  Receive Date: 20120719
  Receipt Date: 20120710
  Transmission Date: 20120928
  Serious: Yes (Other)
  Sender: FDA-Public Use
  Company Number: US-ASTRAZENECA-2012SE28281

PATIENT
  Age: 78 Year
  Sex: Female

DRUGS (6)
  1. ASPIRIN [Concomitant]
  2. NEXIUM [Suspect]
     Route: 048
  3. TOPROL-XL [Suspect]
     Route: 048
  4. TOPROL-XL [Suspect]
     Route: 048
  5. COUMADIN [Concomitant]
  6. CARAFATE [Concomitant]

REACTIONS (5)
  - ULCER [None]
  - THROMBOSIS [None]
  - GASTROOESOPHAGEAL REFLUX DISEASE [None]
  - OCULAR HYPERAEMIA [None]
  - HYPERTENSION [None]
